FAERS Safety Report 23002128 (Version 2)
Quarter: 2023Q4

REPORT INFORMATION
  Report Type: Spontaneous
  Country: FR (occurrence: FR)
  Receive Date: 20230928
  Receipt Date: 20231030
  Transmission Date: 20240110
  Serious: Yes (Death)
  Sender: FDA-Public Use
  Company Number: None

PATIENT
  Age: 65 Year
  Sex: Male

DRUGS (6)
  1. MIRTAZAPINE [Suspect]
     Active Substance: MIRTAZAPINE
     Indication: Depression
     Dosage: UNIT DOSE : 15 MG, FREQUENCY TIME : 1 DAY, THERAPY START DATE: ASKU
  2. VALACYCLOVIR HYDROCHLORIDE [Suspect]
     Active Substance: VALACYCLOVIR HYDROCHLORIDE
     Indication: Infection prophylaxis
     Dosage: UNIT DOSE :1000 MG , FREQUENCY TIME : 1 DAY
     Dates: start: 20230605
  3. RITUXIMAB [Suspect]
     Active Substance: RITUXIMAB
     Indication: B-cell lymphoma
     Dosage: UNIT DOSE :1400 MG , FREQUENCY TIME : 2 MONTHS, RITUXIMAB ((MAMMAL/HAMSTER/CHO CELLS))
     Dates: start: 20221121
  4. RITUXIMAB [Suspect]
     Active Substance: RITUXIMAB
     Dosage: UNIT DOSE :600 MG , FREQUENCY TIME : 28 DAYS, DURATION : 131 DAYS
     Dates: start: 20220505, end: 20220913
  5. IMBRUVICA [Suspect]
     Active Substance: IBRUTINIB
     Indication: B-cell lymphoma
     Dosage: UNIT DOSE :560 MG , FREQUENCY TIME : 1 DAY
     Dates: start: 20230608
  6. BACTRIM [Suspect]
     Active Substance: SULFAMETHOXAZOLE\TRIMETHOPRIM
     Indication: Infection prophylaxis
     Dosage: BACTRIM FORTE, UNIT DOSE : 3 DOSAGE FORMS, FREQUENCY TIME :1 WEEKS
     Dates: start: 20230605

REACTIONS (1)
  - Death [Fatal]

NARRATIVE: CASE EVENT DATE: 20230701
